FAERS Safety Report 5725585-4 (Version None)
Quarter: 2008Q2

REPORT INFORMATION
  Report Type: 
  Country: None (occurrence: None)
  Receive Date: 20080501
  Receipt Date: 20080425
  Transmission Date: 20081010
  Serious: Yes (Life-Threatening, Hospitalization)
  Sender: FDA-Public Use
  Company Number: IE-BOEHRINGER INGELHEIM GMBH, GERMANY-2008-BP-06570RO

PATIENT
  Age: 34 Year
  Sex: Male

DRUGS (12)
  1. METHADONE HCL [Suspect]
     Indication: DRUG ABUSER
  2. FLURAZEPAM [Suspect]
  3. ATAZANAVIR SULFATE [Suspect]
     Indication: ANTIRETROVIRAL THERAPY
  4. RITONAVIR [Suspect]
     Indication: ANTIRETROVIRAL THERAPY
  5. TRUVADA [Suspect]
     Indication: ANTIRETROVIRAL THERAPY
  6. AMOXICILLIN + CLAVULANATE POTASSIUM [Concomitant]
  7. INTRAVENOUS FLUIDS [Concomitant]
     Route: 042
  8. OXYGEN [Concomitant]
  9. ATROPINE [Concomitant]
     Indication: SINUS BRADYCARDIA
     Route: 042
  10. ATROPINE [Concomitant]
     Indication: HYPOTENSION
  11. MAGNESIUM [Concomitant]
     Indication: VENTRICULAR TACHYCARDIA
     Route: 042
  12. CO-TRIMOXAZOLE [Concomitant]
     Indication: PROPHYLAXIS

REACTIONS (12)
  - ASPARTATE AMINOTRANSFERASE INCREASED [None]
  - BLOOD BILIRUBIN ABNORMAL [None]
  - BRADYCARDIA [None]
  - CREPITATIONS [None]
  - FALL [None]
  - HYPERHIDROSIS [None]
  - HYPOTENSION [None]
  - LOSS OF CONSCIOUSNESS [None]
  - SINUS BRADYCARDIA [None]
  - SOMNOLENCE [None]
  - TORSADE DE POINTES [None]
  - VENTRICULAR TACHYCARDIA [None]
